FAERS Safety Report 9059791 (Version 1)
Quarter: 2013Q1

REPORT INFORMATION
  Report Type: Spontaneous
  Country: US (occurrence: None)
  Receive Date: 20130206
  Receipt Date: 20130206
  Transmission Date: 20140127
  Serious: Yes (Hospitalization)
  Sender: FDA-Public Use
  Company Number: None

PATIENT
  Age: 55 Year
  Sex: Male
  Weight: 127.01 kg

DRUGS (1)
  1. QSYMIA [Suspect]
     Indication: OBESITY
     Route: 048
     Dates: start: 20121026, end: 20130201

REACTIONS (4)
  - Dizziness [None]
  - Disturbance in attention [None]
  - Muscle twitching [None]
  - Convulsion [None]
